FAERS Safety Report 10237767 (Version 1)
Quarter: 2014Q2

REPORT INFORMATION
  Report Type: Spontaneous
  Country: US (occurrence: None)
  Receive Date: 20140612
  Receipt Date: 20140612
  Transmission Date: 20141212
  Serious: No
  Sender: FDA-Public Use
  Company Number: None

PATIENT
  Age: 88 Year
  Sex: Male

DRUGS (1)
  1. XTANDI [Suspect]
     Indication: PROSTATE CANCER
     Route: 048

REACTIONS (6)
  - Hypoaesthesia [None]
  - Cerebrovascular accident [None]
  - Dyspnoea [None]
  - Hypertension [None]
  - Diarrhoea [None]
  - Convulsion [None]
